FAERS Safety Report 24269276 (Version 1)
Quarter: 2024Q3

REPORT INFORMATION
  Report Type: Spontaneous
  Country: US (occurrence: None)
  Receive Date: 20240830
  Receipt Date: 20240830
  Transmission Date: 20241017
  Serious: Yes (Other)
  Sender: Public
  Company Number: None

PATIENT
  Age: 19 Year
  Sex: Male
  Weight: 55 kg

DRUGS (1)
  1. TRIKAFTA [Suspect]
     Active Substance: ELEXACAFTOR\IVACAFTOR\TEZACAFTOR
     Indication: Cystic fibrosis
     Dates: start: 20230710

REACTIONS (4)
  - Suicidal ideation [None]
  - Depression [None]
  - Anger [None]
  - Mood altered [None]

NARRATIVE: CASE EVENT DATE: 20240827
